FAERS Safety Report 8200229-0 (Version None)
Quarter: 2012Q1

REPORT INFORMATION
  Report Type: 
  Country: None (occurrence: None)
  Receive Date: 20120312
  Receipt Date: 20120308
  Transmission Date: 20120608
  Serious: Yes (Other)
  Sender: FDA-Public Use
  Company Number: US-PFIZER INC-2012062521

PATIENT
  Sex: Male
  Weight: 10.884 kg

DRUGS (2)
  1. CHILDREN'S ADVIL [Suspect]
     Indication: EAR PAIN
  2. CHILDREN'S ADVIL [Suspect]
     Indication: PYREXIA
     Dosage: UNK, AS NEEDED
     Route: 048
     Dates: start: 20120308, end: 20120308

REACTIONS (5)
  - TREMOR [None]
  - PAIN [None]
  - UNEVALUABLE EVENT [None]
  - UNRESPONSIVE TO STIMULI [None]
  - CRYING [None]
